FAERS Safety Report 5065118-1 (Version None)
Quarter: 2006Q3

REPORT INFORMATION
  Report Type: 
  Country: None (occurrence: None)
  Receive Date: 20060727
  Receipt Date: 20060727
  Transmission Date: 20061208
  Serious: Yes (Hospitalization)
  Sender: FDA-Public Use
  Company Number: None

PATIENT
  Sex: Female

DRUGS (5)
  1. VELCADE [Suspect]
     Indication: METASTATIC SQUAMOUS CELL CARCINOMA
     Dosage: 1.6 MG/M2 WEEKLY IV DRIP
     Route: 041
     Dates: start: 20060615, end: 20060706
  2. VELCADE [Suspect]
     Indication: TRACHEAL DISORDER
     Dosage: 1.6 MG/M2 WEEKLY IV DRIP
     Route: 041
     Dates: start: 20060615, end: 20060706
  3. TAXOTERE [Suspect]
     Dosage: 40 MG/M2 WEEKLY IV DRIP
     Route: 041
     Dates: start: 20060622, end: 20060706
  4. NEUSPAM [Concomitant]
  5. AUGMENTIN [Concomitant]

REACTIONS (6)
  - INCREASED UPPER AIRWAY SECRETION [None]
  - NEUTROPHIL COUNT DECREASED [None]
  - OEDEMA [None]
  - SEROMA [None]
  - TRACHEOSTOMY MALFUNCTION [None]
  - WHITE BLOOD CELL COUNT DECREASED [None]
